FAERS Safety Report 6760016-7 (Version None)
Quarter: 2010Q2

REPORT INFORMATION
  Report Type: 
  Country: None (occurrence: None)
  Receive Date: 20100528
  Receipt Date: 20090624
  Transmission Date: 20101027
  Serious: Yes (Hospitalization)
  Sender: FDA-Public Use
  Company Number: 2009SP007738

PATIENT
  Age: 71 Year
  Sex: Male
  Weight: 108.8633 kg

DRUGS (24)
  1. ASMANEX TWISTHALER [Suspect]
     Indication: ASTHMA
     Dosage: PO
     Route: 048
     Dates: start: 20070101
  2. PROAIR HFA [Concomitant]
  3. XOPENEX [Concomitant]
  4. ADVAIR DISKUS 100/50 [Concomitant]
  5. NASONEX [Concomitant]
  6. SINGULAIR [Concomitant]
  7. ZOCOR [Concomitant]
  8. METFORMIN [Concomitant]
  9. EFFEXOR XR [Concomitant]
  10. FUROSEMIDE [Concomitant]
  11. NORVASC [Concomitant]
  12. ATENOLOL [Concomitant]
  13. DIGOXIN [Concomitant]
  14. DIOVAN [Concomitant]
  15. PLAVIX [Concomitant]
  16. MORPHINE [Concomitant]
  17. POTASSIUM [Concomitant]
  18. ZOLPIDEM [Concomitant]
  19. FLOMAX [Concomitant]
  20. AMITRIPTYLINE [Concomitant]
  21. FLUDROCORTISONE [Concomitant]
  22. GLIMEPIRIDE [Concomitant]
  23. TRILEPTAL [Concomitant]
  24. DIAZEPAM [Concomitant]

REACTIONS (8)
  - ANOSMIA [None]
  - ASTHMA [None]
  - CANDIDIASIS [None]
  - HEADACHE [None]
  - MUSCULAR WEAKNESS [None]
  - MYALGIA [None]
  - TOOTH DISCOLOURATION [None]
  - TOOTH EROSION [None]
